FAERS Safety Report 19840739 (Version 2)
Quarter: 2022Q2

REPORT INFORMATION
  Report Type: Report from Study
  Country: GB (occurrence: GB)
  Receive Date: 20210916
  Receipt Date: 20220404
  Transmission Date: 20220721
  Serious: Yes (Hospitalization, Other)
  Sender: FDA-Public Use
  Company Number: None

PATIENT
  Age: 75 Year
  Sex: Female

DRUGS (36)
  1. ANASTROZOLE [Suspect]
     Active Substance: ANASTROZOLE
     Indication: Breast cancer metastatic
     Dosage: 10 MG, QD
     Route: 048
  2. DOCETAXEL [Suspect]
     Active Substance: DOCETAXEL
     Indication: Breast cancer metastatic
     Route: 065
  3. PERTUZUMAB [Suspect]
     Active Substance: PERTUZUMAB
     Indication: Breast cancer metastatic
     Dosage: UNK
     Route: 065
  4. TRASTUZUMAB [Suspect]
     Active Substance: TRASTUZUMAB
     Indication: Breast cancer metastatic
     Dosage: 600 MG, BID
     Route: 058
  5. ALENDRONIC ACID [Concomitant]
     Active Substance: ALENDRONIC ACID
     Indication: Osteopenia
     Dosage: 70 MG, QW
     Route: 048
  6. ATORVASTATIN [Concomitant]
     Active Substance: ATORVASTATIN
     Indication: Prophylaxis
     Dosage: 20 MG, QD
     Route: 048
  7. BISOPROLOL [Concomitant]
     Active Substance: BISOPROLOL
     Indication: Ejection fraction decreased
     Dosage: 2.5 MG, QD
     Route: 048
     Dates: start: 20160415
  8. CALCIUM CARBONATE [Concomitant]
     Active Substance: CALCIUM CARBONATE
     Indication: Osteopenia
     Dosage: 1000 MG, QD
     Route: 048
     Dates: start: 20180215
  9. CANDESARTAN [Concomitant]
     Active Substance: CANDESARTAN
     Route: 048
     Dates: start: 2013
  10. CHLORPHENIRAMINE MALEATE [Concomitant]
     Active Substance: CHLORPHENIRAMINE MALEATE
     Indication: Premedication
     Dosage: 10 MG, Q3W
     Dates: start: 20150721, end: 20151126
  11. CLOPIDOGREL [Concomitant]
     Active Substance: CLOPIDOGREL BISULFATE
     Indication: Prophylaxis
     Dosage: 75 MG
     Route: 048
  12. COCODAMOL [Concomitant]
     Active Substance: ACETAMINOPHEN\CODEINE PHOSPHATE
     Dosage: 500 MG, PRN, AS NECESSARY
     Route: 048
  13. CO-DYDRAMOL [Concomitant]
     Active Substance: ACETAMINOPHEN\DIHYDROCODEINE
     Indication: Back pain
     Dosage: 500 MG
     Route: 048
     Dates: start: 201701
  14. DALTEPARIN [Concomitant]
     Active Substance: DALTEPARIN
     Indication: Pleural effusion
     Dosage: 1000 IU, QD
     Route: 058
     Dates: start: 20151206, end: 20151206
  15. DEXAMETHASONE [Concomitant]
     Active Substance: DEXAMETHASONE
     Indication: Prophylaxis
     Dosage: 1 GTT DROPS
     Route: 048
     Dates: start: 20160601
  16. DIAMOX SEQUELS [Concomitant]
     Active Substance: ACETAZOLAMIDE
     Dosage: 1 GTT, UNK
     Route: 047
     Dates: start: 20160601, end: 20160604
  17. DIGOXIN [Concomitant]
     Active Substance: DIGOXIN
     Dosage: 62.5 MG, QD
     Route: 048
     Dates: start: 20160121
  18. FELODIPINE KENT [Concomitant]
     Dosage: 2.5 MG, QD
     Route: 048
     Dates: start: 20161030
  19. FENTANYL MERCK [Concomitant]
     Dosage: 200 UG
     Route: 042
     Dates: start: 20160531, end: 20160601
  20. FUROSEMIDE [Concomitant]
     Active Substance: FUROSEMIDE
     Indication: Dyspnoea
     Dosage: 100 MG, QD
     Route: 042
     Dates: start: 20151206, end: 20151207
  21. IBUPROFEN [Concomitant]
     Active Substance: IBUPROFEN
     Dosage: 1200 MG, QD
     Dates: start: 20150918
  22. IMODIUM [Concomitant]
     Active Substance: LOPERAMIDE HYDROCHLORIDE
     Dosage: 4 MG
     Dates: start: 20150730
  23. INDAPAMIDE [Concomitant]
     Active Substance: INDAPAMIDE
     Indication: Prophylaxis
     Dosage: 2.5 MG, QD
     Route: 048
     Dates: start: 2016
  24. IOPIDINE [Concomitant]
     Active Substance: APRACLONIDINE HYDROCHLORIDE
     Dosage: 1 GTT, UNK
     Route: 047
     Dates: start: 20160601, end: 20160629
  25. LIDOCAINE [Concomitant]
     Active Substance: LIDOCAINE
     Indication: Pain
     Route: 062
     Dates: start: 20190405
  26. LISINOPRIL [Concomitant]
     Active Substance: LISINOPRIL
     Indication: Dyspnoea
     Dosage: 2.5 MG, QD
     Route: 048
     Dates: start: 20160121, end: 20160415
  27. METOCLOPRAMIDE [Concomitant]
     Active Substance: METOCLOPRAMIDE
     Indication: Prophylaxis
     Dosage: 10 MG
     Dates: start: 20150730
  28. CYCLOPENTOLATE HYDROCHLORIDE [Concomitant]
     Active Substance: CYCLOPENTOLATE HYDROCHLORIDE
     Dosage: 1 GTT, UNK
     Route: 047
     Dates: start: 20160601, end: 20160601
  29. ONDANSETRON [Concomitant]
     Active Substance: ONDANSETRON
     Indication: Prophylaxis
     Route: 048
     Dates: start: 20150721, end: 20150722
  30. MORPHINE SULFATE [Concomitant]
     Active Substance: MORPHINE SULFATE
     Indication: Pain
     Dosage: 5 MG, PRN, AS NECESSARY
     Route: 048
     Dates: start: 20190805
  31. ACETAMINOPHEN [Concomitant]
     Active Substance: ACETAMINOPHEN
     Indication: Premedication
     Dosage: 500 MG, QD
     Route: 048
  32. PREDNISOLONE [Concomitant]
     Active Substance: PREDNISOLONE
     Dosage: 40 MG, QD
     Route: 048
     Dates: start: 20160601, end: 20160606
  33. RAMIPRIL [Concomitant]
     Active Substance: RAMIPRIL
     Indication: Prophylaxis
     Dosage: 2 DF, QD
     Route: 048
     Dates: start: 20160415, end: 201605
  34. SENNA [Concomitant]
     Active Substance: SENNA LEAF\SENNOSIDES\SENNOSIDES A AND B
     Dosage: 15 MG, QD
     Dates: start: 20150721
  35. TOBRADEX [Concomitant]
     Active Substance: DEXAMETHASONE\TOBRAMYCIN
     Dosage: 1 GTT DROPS
     Route: 047
     Dates: start: 20160601
  36. TRIMETHOPRIM [Concomitant]
     Active Substance: TRIMETHOPRIM
     Indication: Urinary tract infection
     Dosage: 200 MG, QD
     Dates: start: 20181019, end: 20181023

REACTIONS (18)
  - Headache [Not Recovered/Not Resolved]
  - Haemorrhoids [Recovered/Resolved with Sequelae]
  - Rectal haemorrhage [Recovered/Resolved]
  - Presyncope [Recovered/Resolved]
  - Retinal detachment [Recovered/Resolved with Sequelae]
  - Ejection fraction decreased [Recovered/Resolved]
  - Diarrhoea [Recovered/Resolved]
  - Condition aggravated [Recovered/Resolved]
  - Weight decreased [Recovered/Resolved]
  - Pleural effusion [Recovered/Resolved]
  - Alopecia [Recovered/Resolved]
  - Back pain [Recovered/Resolved]
  - Dyspnoea [Recovered/Resolved]
  - Dizziness [Recovered/Resolved]
  - Constipation [Recovered/Resolved]
  - Fatigue [Not Recovered/Not Resolved]
  - Nausea [Recovered/Resolved]
  - Osteopenia [Not Recovered/Not Resolved]

NARRATIVE: CASE EVENT DATE: 20150721
